FAERS Safety Report 6589053-2 (Version None)
Quarter: 2010Q1

REPORT INFORMATION
  Report Type: 
  Country: None (occurrence: None)
  Receive Date: 20100218
  Receipt Date: 20100209
  Transmission Date: 20100710
  Serious: Yes (Other)
  Sender: FDA-Public Use
  Company Number: JP-MERCK-1001USA01661

PATIENT
  Age: 72 Year
  Sex: Female
  Weight: 40 kg

DRUGS (7)
  1. FOSAMAX [Suspect]
     Indication: OSTEOPOROSIS
     Route: 048
     Dates: start: 20091206, end: 20091227
  2. NU-LOTAN [Concomitant]
     Indication: HYPERTENSION
     Route: 048
     Dates: start: 20081215
  3. NU-LOTAN [Concomitant]
     Indication: RENAL IMPAIRMENT
     Route: 048
     Dates: start: 20081215
  4. CARDENALIN [Concomitant]
     Indication: HYPERTENSION
     Route: 048
     Dates: start: 20081215
  5. LIPITOR [Concomitant]
     Indication: HYPERLIPIDAEMIA
     Route: 048
     Dates: start: 20081215
  6. CALSLOT [Concomitant]
     Indication: HYPERTENSION
     Route: 048
     Dates: start: 20081215
  7. ACINON [Concomitant]
     Indication: GASTRIC ULCER
     Route: 048
     Dates: start: 20081215

REACTIONS (2)
  - EYELID OEDEMA [None]
  - OEDEMA [None]
